FAERS Safety Report 21148874 (Version 1)
Quarter: 2022Q3

REPORT INFORMATION
  Report Type: Spontaneous
  Country: GB (occurrence: GB)
  Receive Date: 20220729
  Receipt Date: 20220729
  Transmission Date: 20221026
  Serious: Yes (Other)
  Sender: FDA-Public Use
  Company Number: GB-MYLANLABS-2022M1081521

PATIENT
  Sex: Male

DRUGS (11)
  1. CLOZARIL [Suspect]
     Active Substance: CLOZAPINE
     Indication: Schizophrenia
     Dosage: UNK
     Route: 048
     Dates: start: 20190724, end: 2019
  2. CLOZARIL [Suspect]
     Active Substance: CLOZAPINE
     Dosage: UNK
     Route: 065
  3. LOSARTAN [Concomitant]
     Active Substance: LOSARTAN
     Dosage: 100 MILLIGRAM, QD
     Route: 065
  4. LEVETIRACETAM [Concomitant]
     Active Substance: LEVETIRACETAM
     Dosage: 250 MILLIGRAM, BID (250 MG BD)
     Route: 065
  5. OLANZAPINE [Concomitant]
     Active Substance: OLANZAPINE
     Dosage: 50 MILLIGRAM, QD (50 MG OD)
     Route: 065
  6. AMLODIPINE [Concomitant]
     Active Substance: AMLODIPINE BESYLATE
     Dosage: 10 MILLIGRAM, QD (10 MG OD)
     Route: 065
  7. CHOLECALCIFEROL [Concomitant]
     Active Substance: CHOLECALCIFEROL
     Dosage: UNK
     Route: 065
  8. DAPAGLIFLOZIN [Concomitant]
     Active Substance: DAPAGLIFLOZIN
     Dosage: 10 MILLIGRAM, QD (10 MG OD)
     Route: 065
  9. METFORMIN [Concomitant]
     Active Substance: METFORMIN HYDROCHLORIDE
     Dosage: 1 MILLIGRAM, BID (1 MG BD)
     Route: 065
  10. RIVAROXABAN [Concomitant]
     Active Substance: RIVAROXABAN
     Dosage: 20 MILLIGRAM
     Route: 065
  11. VALPROATE SODIUM [Concomitant]
     Active Substance: VALPROATE SODIUM
     Dosage: 1 MILLIGRAM, BID (1MG BD)
     Route: 065

REACTIONS (4)
  - Hypoxia [Unknown]
  - Myocarditis [Unknown]
  - Troponin increased [Unknown]
  - Respiratory tract infection [Unknown]
